FAERS Safety Report 14253715 (Version 4)
Quarter: 2018Q4

REPORT INFORMATION
  Report Type: Report from Study
  Country: US (occurrence: US)
  Receive Date: 20171205
  Receipt Date: 20181219
  Transmission Date: 20190204
  Serious: Yes (Hospitalization)
  Sender: FDA-Public Use
  Company Number: US-GILEAD-2017-0307809

PATIENT
  Age: 66 Year
  Sex: Female
  Weight: 74.84 kg

DRUGS (31)
  1. B COMPLEX                          /00322001/ [Concomitant]
     Active Substance: CALCIUM PANTOTHENATE\CYANOCOBALAMIN\NIACINAMIDE\PYRIDOXINE HYDROCHLORIDE\RIBOFLAVIN\THIAMINE HYDROCHLORIDE
     Dosage: 1 DF, QD
     Route: 048
  2. TYLENOL [Concomitant]
     Active Substance: ACETAMINOPHEN
     Dosage: 500-1000 MG Q 6 HOURS PRN
     Dates: start: 20171124, end: 20171125
  3. VICKS NYQUIL [Concomitant]
     Active Substance: ACETAMINOPHEN\DEXTROMETHORPHAN HYDROBROMIDE\DOXYLAMINE SUCCINATE
     Indication: UPPER RESPIRATORY TRACT INFECTION
     Dosage: UNK
     Dates: start: 20160923
  4. FUROSEMIDE. [Concomitant]
     Active Substance: FUROSEMIDE
     Dosage: 40 MG, QD
     Route: 048
  5. TORADOL [Concomitant]
     Active Substance: KETOROLAC TROMETHAMINE
     Dosage: 15 MG, Q 6 H
  6. TIRABRUTINIB [Suspect]
     Active Substance: TIRABRUTINIB
     Indication: B-CELL LYMPHOMA
     Dosage: 40 MG, QD
     Route: 048
     Dates: start: 20170926
  7. ACYCLOVIR                          /00587301/ [Concomitant]
     Active Substance: ACYCLOVIR
     Dosage: 800 MG, QHS
     Route: 048
     Dates: start: 20171122, end: 20171125
  8. SENOKOT [Concomitant]
     Active Substance: SENNOSIDES
     Dosage: 8.6-50 MG 1 TABLET BID
     Dates: start: 20171124, end: 20171125
  9. RAMELTEON [Concomitant]
     Active Substance: RAMELTEON
     Dosage: UNK
     Dates: start: 20170109
  10. TIRABRUTINIB [Suspect]
     Active Substance: TIRABRUTINIB
     Dosage: 40 MG
     Route: 048
     Dates: start: 20170126, end: 20170619
  11. COENZYME Q10 [Concomitant]
     Active Substance: UBIDECARENONE
     Dosage: 100 MG, QD
     Route: 048
  12. LOVENOX [Concomitant]
     Active Substance: ENOXAPARIN SODIUM
     Dosage: 40 MG, QHS
     Dates: start: 20171124, end: 20171125
  13. ROXICODONE [Concomitant]
     Active Substance: OXYCODONE HYDROCHLORIDE
     Dosage: 5-10 MG Q 4 H PRN
     Dates: start: 20171122, end: 20171122
  14. CHOLECALCIFEROL [Concomitant]
     Active Substance: CHOLECALCIFEROL
     Dosage: 5000 MG, QD
     Route: 048
  15. L-METHYLFOLATE [Concomitant]
     Active Substance: LEVOMEFOLIC ACID
     Dosage: 1000 MG, QD
     Route: 048
  16. DULCOLAX (BISACODYL) [Concomitant]
     Active Substance: BISACODYL
     Dosage: 10 MG, PRN
     Route: 054
     Dates: start: 20171124, end: 20171125
  17. TIRABRUTINIB [Suspect]
     Active Substance: TIRABRUTINIB
     Dosage: 80 MG, QD
     Route: 048
     Dates: start: 20160728, end: 20161209
  18. IDELALISIB [Suspect]
     Active Substance: IDELALISIB
     Indication: B-CELL LYMPHOMA
     Dosage: 100 MG, QD
     Route: 048
     Dates: start: 20160729, end: 20170108
  19. ACYCLOVIR                          /00587301/ [Concomitant]
     Active Substance: ACYCLOVIR
     Dosage: 800 MG, QHS
     Route: 048
  20. POTASSIUM CHLORIDE. [Concomitant]
     Active Substance: POTASSIUM CHLORIDE
     Dosage: 10 MEQ, QD
     Route: 048
  21. TIRABRUTINIB [Suspect]
     Active Substance: TIRABRUTINIB
     Dosage: 20 MG, UNK
     Route: 048
     Dates: start: 20170706, end: 20170821
  22. IDELALISIB [Suspect]
     Active Substance: IDELALISIB
     Dosage: 50 UNK, UNK
     Route: 048
     Dates: start: 20170126, end: 20170227
  23. IDELALISIB [Suspect]
     Active Substance: IDELALISIB
     Dosage: 100 UNK, UNK
     Route: 048
     Dates: start: 20170228
  24. MIRALAX [Concomitant]
     Active Substance: POLYETHYLENE GLYCOL 3350
     Dosage: 34 G, TID AS NEEDED
     Dates: start: 20171124, end: 20171125
  25. VICKS DAYQUIL [Concomitant]
     Active Substance: DEXTROMETHORPHAN HYDROBROMIDE\GUAIFENESIN
     Indication: UPPER RESPIRATORY TRACT INFECTION
     Dosage: UNK
     Dates: start: 20160923
  26. SODIUM PHOSPHATE [Concomitant]
     Active Substance: SODIUM PHOSPHATE
     Indication: HYPOPHOSPHATAEMIA
     Dosage: UNK
     Dates: start: 20170109
  27. PROCHLORPERAZINE. [Concomitant]
     Active Substance: PROCHLORPERAZINE
     Dosage: UNK
     Dates: start: 20170109
  28. POTASSIUM PHOSPHATE                /00493501/ [Concomitant]
     Active Substance: POTASSIUM PHOSPHATE, DIBASIC
     Indication: HYPOKALAEMIA
     Dosage: UNK
     Dates: start: 20170109
  29. LEVOTHYROXINE. [Concomitant]
     Active Substance: LEVOTHYROXINE
     Indication: HYPOTHYROIDISM
     Dosage: 88 UG, QD
     Route: 048
  30. LOVENOX [Concomitant]
     Active Substance: ENOXAPARIN SODIUM
     Dosage: 40 MG, QHS
     Dates: start: 20171122, end: 20171122
  31. ZOFRAN [Concomitant]
     Active Substance: ONDANSETRON HYDROCHLORIDE
     Dosage: 4 MG, Q12 H PRN

REACTIONS (1)
  - Cellulitis [Recovered/Resolved]

NARRATIVE: CASE EVENT DATE: 20171122
